FAERS Safety Report 9610512 (Version 1)
Quarter: 2013Q4

REPORT INFORMATION
  Report Type: Spontaneous
  Country: US (occurrence: US)
  Receive Date: 20131009
  Receipt Date: 20131009
  Transmission Date: 20140711
  Serious: No
  Sender: FDA-Public Use
  Company Number: US-PURDUE-USA-2012-0097041

PATIENT
  Sex: Female

DRUGS (3)
  1. BUTRANS [Suspect]
     Indication: BACK PAIN
     Dosage: UNK UNK, 1/WEEK
     Route: 062
     Dates: start: 201112, end: 2011
  2. LORTAB                             /00607101/ [Concomitant]
     Indication: BACK PAIN
     Dosage: 1 TO 2 TABLET (10/500MG), DAILY
     Route: 048
  3. CLIMARA [Concomitant]
     Indication: OESTROGEN REPLACEMENT THERAPY
     Dosage: 1 PATCH, EVERY FOUR DAYS
     Route: 062

REACTIONS (4)
  - Application site scar [Not Recovered/Not Resolved]
  - Application site pruritus [Recovered/Resolved]
  - Application site pain [Recovered/Resolved]
  - Memory impairment [Not Recovered/Not Resolved]
